FAERS Safety Report 4556528-7 (Version None)
Quarter: 2005Q1

REPORT INFORMATION
  Report Type: 
  Country: None (occurrence: None)
  Receive Date: 20050114
  Receipt Date: 20040917
  Transmission Date: 20050727
  Serious: Yes (Life-Threatening)
  Sender: FDA-Public Use
  Company Number: 0002811

PATIENT
  Age: 2 Year
  Sex: Female
  Weight: 13 kg

DRUGS (7)
  1. INTRALIPID 20% [Suspect]
     Indication: VOLVULUS OF BOWEL
     Dosage: 14 ML/ 1 DASILY/ INTRAVENOUS INF
     Route: 042
     Dates: start: 20021001, end: 20040914
  2. DEXTROSE [Concomitant]
  3. TRAVASOL [Concomitant]
  4. MULTI-VITAMINS [Concomitant]
  5. VITAMIN C [Concomitant]
  6. HEPARIN [Concomitant]
  7. LEVOCARNITINE [Concomitant]

REACTIONS (5)
  - BACTERIAL SEPSIS [None]
  - FUNGAL SEPSIS [None]
  - HEPATIC FAILURE [None]
  - INFUSION SITE INFECTION [None]
  - PANCREATITIS [None]
